FAERS Safety Report 8693204 (Version 3)
Quarter: 2012Q4

REPORT INFORMATION
  Report Type: 
  Country: US (occurrence: US)
  Receive Date: 20120730
  Receipt Date: 20120925
  Transmission Date: 20130627
  Serious: Yes (Hospitalization)
  Sender: FDA-Public Use
  Company Number: US-BAYER-2012-071760

PATIENT
  Age: 33 Year
  Sex: Female
  Weight: 89.8 kg

DRUGS (20)
  1. GIANVI [Suspect]
     Indication: POLYCYSTIC OVARIES
  2. YAZ [Suspect]
     Indication: POLYCYSTIC OVARIES
     Dosage: UNK
     Dates: start: 200907, end: 201107
  3. METFORMIN [Concomitant]
     Dosage: 500 mg, daily
  4. INDAPAMIDE [Concomitant]
     Dosage: 1.25 mg, daily
  5. NUCYNTA [Concomitant]
     Dosage: 75 mg every 8 hours
  6. LYRICA [Concomitant]
     Dosage: 50 mg three times daily
  7. FLEXERIL [Concomitant]
     Dosage: 10 mg, three times daily
  8. CELEXA [Concomitant]
     Dosage: 40 mg, daily
  9. XANAX [Concomitant]
     Indication: PANIC ATTACK
     Dosage: 0.5mg, ? tablet three times daily
  10. NIFEDIPINE [Concomitant]
     Dosage: 30 mg, UNK
     Dates: start: 20110404
  11. CLONAZEPAM [Concomitant]
     Dosage: 1 twice daily
     Dates: start: 20110412
  12. VALIUM [Concomitant]
     Dosage: 5 mg, UNK
     Dates: start: 20110418
  13. LAMICTAL [Concomitant]
     Dosage: 100 mg, daily
     Dates: start: 20110412
  14. TRAZODONE [Concomitant]
     Dosage: 100 mg, UNK
     Dates: start: 20110412
  15. KEPPRA [Concomitant]
     Dosage: 500 mg, twice daily
     Dates: start: 20110427
  16. DRISDOL [Concomitant]
     Dosage: 50,000 units weekly x 12 weeks
     Dates: start: 20110524
  17. PREDNISOLONE [Concomitant]
     Dosage: 15mg/5ml, 2 [teaspoons] twice daily for 3 days, 1 [teaspoon] twice daily for 3 days, then 1 [teaspoo
     Dates: start: 20110524
  18. CEFUROXIME [Concomitant]
     Dosage: 500mg twice daily for 10 days
     Dates: start: 20110524
  19. ASPIRIN [Concomitant]
     Dosage: UNK
  20. ALPRAZOLAM [Concomitant]
     Dosage: 0.5 mg, three times daily (? tab in am, and at noon, and 1 tab qhs)

REACTIONS (2)
  - Deep vein thrombosis [None]
  - Injury [None]
